FAERS Safety Report 5301480-X (Version None)
Quarter: 2007Q2

REPORT INFORMATION
  Report Type: 
  Country: None (occurrence: None)
  Receive Date: 20070412
  Receipt Date: 20070328
  Transmission Date: 20071010
  Serious: Yes (Other)
  Sender: FDA-Public Use
  Company Number: 2007S1002740

PATIENT
  Age: 45 Year
  Sex: Female
  Weight: 62.5964 kg

DRUGS (4)
  1. CARDIZEM CD [Suspect]
     Indication: SINUS TACHYCARDIA
     Dosage: 120 MG, DAILY;ORAL
     Route: 048
     Dates: start: 20070303, end: 20070310
  2. ATENOLOL [Suspect]
     Dosage: 12.5 MG, DAILY;ORAL
     Route: 048
     Dates: start: 20070314, end: 20070315
  3. BACLOFEN [Concomitant]
  4. LANSOPRAZOLE [Concomitant]

REACTIONS (1)
  - DRUG HYPERSENSITIVITY [None]
